FAERS Safety Report 5061581-0 (Version None)
Quarter: 2006Q3

REPORT INFORMATION
  Report Type: 
  Country: None (occurrence: None)
  Receive Date: 20060721
  Receipt Date: 20060630
  Transmission Date: 20061208
  Serious: Yes (Hospitalization)
  Sender: FDA-Public Use
  Company Number: 2006RR-02890

PATIENT
  Age: 70 Year
  Sex: Male

DRUGS (7)
  1. SIMVASTATIN FAMILY [Suspect]
     Indication: DYSLIPIDAEMIA
     Dosage: 40 MG, QD, ORAL
     Route: 048
  2. FENOFIBRATE [Suspect]
     Indication: DYSLIPIDAEMIA
     Dosage: 160 MG, QD, ORAL
     Route: 048
  3. ATENOLOL [Concomitant]
  4. LEVOTHYROXINE SODIUM [Concomitant]
  5. ROSIGLITAZONE [Concomitant]
  6. RANITIDINE (RANITIDINE) TABLET [Concomitant]
  7. TERAZOSIN HYDROCHLORIDE [Concomitant]

REACTIONS (3)
  - DRUG INTERACTION [None]
  - MYALGIA [None]
  - RHABDOMYOLYSIS [None]
